FAERS Safety Report 15740181 (Version 4)
Quarter: 2019Q1

REPORT INFORMATION
  Report Type: Spontaneous
  Country: JP (occurrence: JP)
  Receive Date: 20181219
  Receipt Date: 20190322
  Transmission Date: 20190417
  Serious: Yes (Life-Threatening, Hospitalization, Other)
  Sender: FDA-Public Use
  Company Number: IND-JP-009507513-1812JPN002218J

PATIENT
  Age: 89 Year
  Sex: Male
  Weight: 68 kg

DRUGS (8)
  1. SEVOFLURANE. [Concomitant]
     Active Substance: SEVOFLURANE
     Indication: INDUCTION AND MAINTENANCE OF ANAESTHESIA
     Dosage: 1 PERCENT, Q4H
     Dates: start: 20181128, end: 20181128
  2. BRIDION [Concomitant]
     Active Substance: SUGAMMADEX
     Indication: NEUROMUSCULAR BLOCKING THERAPY
     Dosage: 200 MILLIGRAM, BID
     Route: 042
     Dates: start: 20181128, end: 20181128
  3. ATVAGOREVERSE [Concomitant]
     Indication: HYPOTONIA
     Dosage: 6 MILLILITER, QD
     Route: 042
     Dates: start: 20181128, end: 20181128
  4. FENTANYL. [Concomitant]
     Active Substance: FENTANYL
     Dosage: UNK MILLILITER (4.2 ML / 4 H IN CONTINUOUS INFUSION (DURING SURGERY), 6 MG ONCE BY DIB ADMINISTRATIO
     Route: 042
     Dates: start: 20181128, end: 20181128
  5. PROPOFOL. [Concomitant]
     Active Substance: PROPOFOL
     Dosage: UNK MILLIGRAM 70MG AT THE TIME OF INTUBATION,200MG BY 4HOURS CONTINUOUS ADMINISTRATION(DURING SURGER
     Route: 042
     Dates: start: 20181128, end: 20181128
  6. SOSEGON [Concomitant]
     Active Substance: PENTAZOCINE
     Indication: PAIN MANAGEMENT
     Dosage: 15 MILLIGRAM, QD
     Route: 041
     Dates: start: 20181128, end: 20181128
  7. ESLAX INTRAVENOUS 25MG/2.5ML [Suspect]
     Active Substance: ROCURONIUM BROMIDE
     Indication: NEUROMUSCULAR BLOCKING THERAPY
     Dosage: 230 MILLIGRAM, 50MG AT THE TIME OF INTUBATION, 25MG 3 TIMES BY BUCKING AND 105MG BY 4HOURS CONTINUOU
     Route: 041
     Dates: start: 20181128, end: 20181128
  8. ATARAX-P [Concomitant]
     Active Substance: HYDROXYZINE HYDROCHLORIDE
     Indication: PAIN MANAGEMENT
     Dosage: 25 MILLIGRAM, QD
     Route: 041
     Dates: start: 20181128, end: 20181128

REACTIONS (9)
  - Postresuscitation encephalopathy [Not Recovered/Not Resolved]
  - Infusion site extravasation [Unknown]
  - Cardio-respiratory arrest [Recovered/Resolved with Sequelae]
  - Injection site swelling [Unknown]
  - Pain in extremity [Unknown]
  - Back pain [Unknown]
  - Recurrence of neuromuscular blockade [Not Recovered/Not Resolved]
  - Speech disorder [Unknown]
  - Respiratory depression [Recovered/Resolved with Sequelae]

NARRATIVE: CASE EVENT DATE: 20181128
